FAERS Safety Report 13231422 (Version 1)
Quarter: 2017Q1

REPORT INFORMATION
  Report Type: Spontaneous
  Country: None (occurrence: US)
  Receive Date: 20170214
  Receipt Date: 20170214
  Transmission Date: 20170428
  Serious: No
  Sender: FDA-Public Use
  Company Number: US-AMAG PHARMACEUTICALS, INC.-AMAG201601256

PATIENT

DRUGS (6)
  1. SYNTHROID [Concomitant]
     Active Substance: LEVOTHYROXINE SODIUM
     Indication: PRODUCT USED FOR UNKNOWN INDICATION
     Dosage: 150 MCG/DL, QD
     Route: 048
     Dates: start: 20160926
  2. MAKENA [Suspect]
     Active Substance: HYDROXYPROGESTERONE CAPROATE
     Indication: PRODUCT USED FOR UNKNOWN INDICATION
     Dosage: UNK
     Route: 065
  3. VENTOLIN [Concomitant]
     Active Substance: ALBUTEROL SULFATE
     Indication: ASTHMA
     Dosage: 90 MCG/DL, UNK
     Route: 055
     Dates: start: 20110101
  4. SYNTHROID [Concomitant]
     Active Substance: LEVOTHYROXINE SODIUM
     Indication: PRODUCT USED FOR UNKNOWN INDICATION
     Dosage: 137 MCG/DL, QD
     Route: 048
     Dates: start: 20110101, end: 20160926
  5. PRENATAL VITAMINS [Concomitant]
     Active Substance: VITAMINS
     Indication: PRODUCT USED FOR UNKNOWN INDICATION
     Dosage: 1 TABS, QD
     Route: 048
     Dates: start: 20160301
  6. IRON [Concomitant]
     Active Substance: IRON
     Indication: PRODUCT USED FOR UNKNOWN INDICATION
     Dosage: 65 MG, UNK
     Route: 048
     Dates: start: 20160812

REACTIONS (7)
  - Injection site pruritus [Unknown]
  - Anaemia [Unknown]
  - Asthma [Unknown]
  - Headache [Unknown]
  - Oedema peripheral [Unknown]
  - Drug administration error [Unknown]
  - Injection site nodule [Unknown]
